FAERS Safety Report 20135289 (Version 1)
Quarter: 2021Q4

REPORT INFORMATION
  Report Type: Spontaneous
  Country: JM (occurrence: None)
  Receive Date: 20211130
  Receipt Date: 20211130
  Transmission Date: 20220303
  Serious: Yes (Other)
  Sender: FDA-Public Use
  Company Number: None

PATIENT
  Age: 41 Year
  Sex: Female
  Weight: 87.75 kg

DRUGS (1)
  1. BROMOCRIPTINE [Suspect]
     Active Substance: BROMOCRIPTINE
     Indication: Breast enlargement
     Dates: start: 20180603, end: 20180617

REACTIONS (3)
  - Depression [None]
  - Hallucination [None]
  - Amnesia [None]

NARRATIVE: CASE EVENT DATE: 20190603
